FAERS Safety Report 9361066 (Version 1)
Quarter: 2013Q2

REPORT INFORMATION
  Report Type: Spontaneous
  Country: FR (occurrence: FR)
  Receive Date: 20130621
  Receipt Date: 20130621
  Transmission Date: 20140414
  Serious: Yes (Hospitalization)
  Sender: FDA-Public Use
  Company Number: PHHY2013FR063146

PATIENT
  Age: 80 Year
  Sex: Male

DRUGS (4)
  1. CUBICIN [Suspect]
     Dosage: 500 MG, QD
     Route: 042
     Dates: start: 20110407, end: 20110411
  2. CUBICIN [Suspect]
     Dosage: 500 MG, QD
     Route: 042
     Dates: start: 20110415, end: 20110511
  3. RIFAMPICIN [Suspect]
     Dosage: UNK
     Dates: start: 20110407, end: 20110411
  4. BRISTOPEN [Suspect]
     Dosage: UNK
     Dates: start: 20110411, end: 20110415

REACTIONS (6)
  - Eosinophilic pneumonia [Recovering/Resolving]
  - Eosinophilia [Recovering/Resolving]
  - Pyrexia [Recovering/Resolving]
  - Chills [Recovering/Resolving]
  - Asthenia [Recovering/Resolving]
  - Cough [Recovering/Resolving]
